FAERS Safety Report 8375761-X (Version None)
Quarter: 2012Q2

REPORT INFORMATION
  Report Type: 
  Country: None (occurrence: None)
  Receive Date: 20120522
  Receipt Date: 20120508
  Transmission Date: 20120825
  Serious: Yes (Death, Hospitalization, Other)
  Sender: FDA-Public Use
  Company Number: TR-RANBAXY-2012RR-55231

PATIENT
  Age: 17 Year
  Sex: Male

DRUGS (1)
  1. METFORMIN HCL [Suspect]
     Indication: SUICIDE ATTEMPT
     Dosage: 80 DOSES OF 1000 MG
     Route: 048

REACTIONS (3)
  - OVERDOSE [None]
  - CONFUSIONAL STATE [None]
  - LACTIC ACIDOSIS [None]
